FAERS Safety Report 16975346 (Version 2)
Quarter: 2020Q1

REPORT INFORMATION
  Report Type: Spontaneous
  Country: GB (occurrence: GB)
  Receive Date: 20191030
  Receipt Date: 20200121
  Transmission Date: 20200409
  Serious: Yes (Death, Other)
  Sender: FDA-Public Use
  Company Number: GB-AMGEN-GBRSP2019177129

PATIENT

DRUGS (3)
  1. PROLIA [Suspect]
     Active Substance: DENOSUMAB
     Indication: BARRETT^S OESOPHAGUS
  2. PROLIA [Suspect]
     Active Substance: DENOSUMAB
     Indication: OSTEOPOROSIS
     Dosage: 60 MILLIGRAM
     Route: 065
  3. PROLIA [Suspect]
     Active Substance: DENOSUMAB
     Indication: CHRONIC KIDNEY DISEASE

REACTIONS (27)
  - Humerus fracture [Unknown]
  - Foot fracture [Unknown]
  - Dementia [Fatal]
  - Wrist fracture [Unknown]
  - Neoplasm malignant [Fatal]
  - Cerebrovascular disorder [Fatal]
  - Spinal fracture [Unknown]
  - Asthenia [Unknown]
  - Treatment noncompliance [Unknown]
  - Ankle fracture [Unknown]
  - Clavicle fracture [Unknown]
  - Pneumonia [Fatal]
  - Adverse drug reaction [Unknown]
  - Hand fracture [Unknown]
  - Respiratory tract infection [Fatal]
  - Lung disorder [Fatal]
  - Metabolic disorder [Fatal]
  - Nervous system disorder [Fatal]
  - Haemorrhage [Fatal]
  - Bone density decreased [Recovered/Resolved]
  - Therapy non-responder [Unknown]
  - Off label use [Unknown]
  - Urinary tract infection [Unknown]
  - Death [Fatal]
  - Urosepsis [Fatal]
  - Fracture [Unknown]
  - Rash [Unknown]
